FAERS Safety Report 4924009-4 (Version None)
Quarter: 2006Q1

REPORT INFORMATION
  Report Type: 
  Country: None (occurrence: None)
  Receive Date: 20060227
  Receipt Date: 20050921
  Transmission Date: 20060701
  Serious: Yes (Hospitalization)
  Sender: FDA-Public Use
  Company Number: US-MERCK-0509USA03206

PATIENT
  Age: 57 Year
  Sex: Male
  Weight: 86 kg

DRUGS (11)
  1. VIOXX [Suspect]
     Indication: NECK PAIN
     Route: 048
     Dates: start: 19991201, end: 20041101
  2. VIOXX [Suspect]
     Indication: SHOULDER PAIN
     Route: 048
     Dates: start: 19991201, end: 20041101
  3. LANOXIN [Concomitant]
     Route: 065
  4. PRAVACHOL [Concomitant]
     Route: 065
  5. AMBIEN [Concomitant]
     Route: 065
  6. ZANTAC [Concomitant]
     Route: 065
  7. HYDROCODONE BITARTRATE [Concomitant]
     Route: 065
  8. AVAPRO [Concomitant]
     Route: 065
  9. FLOMAX [Concomitant]
     Route: 065
  10. XANAX [Concomitant]
     Route: 065
  11. IBUPROFEN [Concomitant]
     Route: 065

REACTIONS (7)
  - ANAEMIA [None]
  - ASTHENIA [None]
  - CAROTID ARTERY OCCLUSION [None]
  - CEREBROVASCULAR ACCIDENT [None]
  - GASTRIC ULCER [None]
  - GRIP STRENGTH DECREASED [None]
  - HAEMORRHOIDAL HAEMORRHAGE [None]
